FAERS Safety Report 19797988 (Version 1)
Quarter: 2021Q3

REPORT INFORMATION
  Report Type: Spontaneous
  Country: CA (occurrence: CA)
  Receive Date: 20210907
  Receipt Date: 20210907
  Transmission Date: 20211014
  Serious: Yes (Disabling)
  Sender: FDA-Public Use
  Company Number: CA-ACCORD-237131

PATIENT
  Age: 69 Year
  Sex: Female

DRUGS (4)
  1. OLMESARTAN/HYDROCHLOROTHIAZIDE [Suspect]
     Active Substance: HYDROCHLOROTHIAZIDE\OLMESARTAN MEDOXOMIL
     Indication: HYPERTENSION
     Dosage: 1 EVERY 1 DAYS
     Route: 048
  2. PANTOLOC [Concomitant]
     Active Substance: PANTOPRAZOLE SODIUM
  3. REACTINE [Concomitant]
  4. SENOKOT [Concomitant]
     Active Substance: SENNOSIDES

REACTIONS (2)
  - Abdominal discomfort [Recovered/Resolved]
  - Aphthous ulcer [Recovered/Resolved]
